FAERS Safety Report 4506858-X (Version None)
Quarter: 2004Q4

REPORT INFORMATION
  Report Type: 
  Country: None (occurrence: None)
  Receive Date: 20041122
  Receipt Date: 20041029
  Transmission Date: 20050328
  Serious: Yes (Other)
  Sender: FDA-Public Use
  Company Number: PHNU2004DE03699

PATIENT
  Age: 36 Year
  Sex: Male
  Weight: 80 kg

DRUGS (6)
  1. SANDIMMUNE [Suspect]
     Indication: PSORIATIC ARTHROPATHY
     Dosage: 4-2.5MG/DAY
     Dates: start: 19991101, end: 20010201
  2. METHOTREXATE [Concomitant]
     Dosage: 10 MG, QW
     Route: 030
     Dates: start: 19970101, end: 20010201
  3. DICLO ^CT-ARZNEIMITTEL^ [Concomitant]
  4. IBUPROFEN [Concomitant]
  5. CORTICOSTEROID NOS [Concomitant]
  6. FOLIC ACID [Concomitant]

REACTIONS (1)
  - PARKINSON'S DISEASE [None]
